FAERS Safety Report 5548005-1 (Version None)
Quarter: 2007Q4

REPORT INFORMATION
  Report Type: 
  Country: None (occurrence: None)
  Receive Date: 20071211
  Receipt Date: 20070327
  Transmission Date: 20080405
  Serious: No
  Sender: FDA-Public Use
  Company Number: US-AMGEN-KDL215272

PATIENT
  Sex: Male

DRUGS (4)
  1. ENBREL [Suspect]
     Indication: JUVENILE ARTHRITIS
     Route: 058
     Dates: start: 20061005
  2. PREDNISONE [Concomitant]
     Dates: start: 20061005
  3. IBUPROFEN [Concomitant]
  4. SYNTHROID [Concomitant]

REACTIONS (1)
  - INJECTION SITE IRRITATION [None]
